FAERS Safety Report 8478990-X (Version None)
Quarter: 2012Q2

REPORT INFORMATION
  Report Type: 
  Country: None (occurrence: None)
  Receive Date: 20120629
  Receipt Date: 20120625
  Transmission Date: 20120825
  Serious: Yes (Life-Threatening)
  Sender: FDA-Public Use
  Company Number: US-MERCK-1206USA04556

PATIENT
  Age: 67 Year
  Sex: Female

DRUGS (2)
  1. LEVOTHYROXINE SODIUM [Concomitant]
     Route: 065
  2. JANUVIA [Suspect]
     Indication: BLOOD GLUCOSE
     Dosage: CUTTING 100 MG TABLET IN HALF AND TAKING 0.5 TABLET BID
     Route: 048
     Dates: start: 20120613

REACTIONS (3)
  - WRONG TECHNIQUE IN DRUG USAGE PROCESS [None]
  - INAPPROPRIATE SCHEDULE OF DRUG ADMINISTRATION [None]
  - BLOOD GLUCOSE INCREASED [None]
